FAERS Safety Report 6434832-5 (Version None)
Quarter: 2009Q4

REPORT INFORMATION
  Report Type: 
  Country: None (occurrence: None)
  Receive Date: 20091110
  Receipt Date: 20091028
  Transmission Date: 20100525
  Serious: No
  Sender: FDA-Public Use
  Company Number: US-JNJFOC-20091100241

PATIENT
  Sex: Female
  Weight: 66.23 kg

DRUGS (5)
  1. DURAGESIC-100 [Suspect]
     Indication: CYSTITIS INTERSTITIAL
     Route: 062
  2. TAPENTADOL HYDROCHLORIDE [Concomitant]
     Indication: BREAKTHROUGH PAIN
     Route: 048
  3. ENABLEX [Concomitant]
     Indication: BLADDER DISORDER
     Route: 048
  4. ELMIRON [Concomitant]
     Indication: BLADDER DISORDER
     Route: 048
  5. CIPRO [Concomitant]
     Indication: BLADDER DISORDER
     Route: 048

REACTIONS (2)
  - DRUG ADMINISTERED AT INAPPROPRIATE SITE [None]
  - INAPPROPRIATE SCHEDULE OF DRUG ADMINISTRATION [None]
